FAERS Safety Report 14142854 (Version 1)
Quarter: 2017Q4

REPORT INFORMATION
  Report Type: Report from Study
  Country: US (occurrence: US)
  Receive Date: 20171030
  Receipt Date: 20171030
  Transmission Date: 20180321
  Serious: Yes (Other)
  Sender: FDA-Public Use
  Company Number: US-TEVA-809191USA

PATIENT
  Age: 44 Year
  Sex: Male

DRUGS (21)
  1. TAB-A-VITE [Concomitant]
  2. ACETAMINOPHEN. [Concomitant]
     Active Substance: ACETAMINOPHEN
  3. MILK OF MAGNESIA [Concomitant]
     Active Substance: MAGNESIUM HYDROXIDE
  4. MELOXICAM. [Concomitant]
     Active Substance: MELOXICAM
  5. HALOPERIDOL. [Concomitant]
     Active Substance: HALOPERIDOL
  6. TUMS [Concomitant]
     Active Substance: CALCIUM CARBONATE
  7. BACLOFEN. [Concomitant]
     Active Substance: BACLOFEN
  8. MOBIC [Concomitant]
     Active Substance: MELOXICAM
  9. CITALOPRAM HYDROBROMIDE. [Concomitant]
     Active Substance: CITALOPRAM HYDROBROMIDE
  10. ZOFRAN [Concomitant]
     Active Substance: ONDANSETRON HYDROCHLORIDE
  11. TRAZODONE HYDROCHLORIDE. [Concomitant]
     Active Substance: TRAZODONE HYDROCHLORIDE
  12. VITAMIN D3 [Concomitant]
     Active Substance: CHOLECALCIFEROL
  13. MIRALAX [Concomitant]
     Active Substance: POLYETHYLENE GLYCOL 3350
  14. AUSTEDO [Suspect]
     Active Substance: DEUTETRABENAZINE
     Indication: HUNTINGTON^S DISEASE
     Route: 065
     Dates: start: 20170808
  15. ATIVAN [Concomitant]
     Active Substance: LORAZEPAM
  16. PROMISEB [Concomitant]
     Active Substance: DEVICE
  17. AUSTEDO [Suspect]
     Active Substance: DEUTETRABENAZINE
     Dosage: 36 MILLIGRAM DAILY;
     Route: 065
  18. AUSTEDO [Suspect]
     Active Substance: DEUTETRABENAZINE
     Dosage: 30 MILLIGRAM DAILY; 6MG AND 9MG TWICE DAILY
     Route: 048
  19. LORAZEPAM. [Concomitant]
     Active Substance: LORAZEPAM
  20. POLYETHYLENE GLYCOL [Concomitant]
     Active Substance: POLYETHYLENE GLYCOLS
  21. BISACODYL. [Concomitant]
     Active Substance: BISACODYL

REACTIONS (11)
  - Muscle spasms [Unknown]
  - Fall [Unknown]
  - Irritability [Not Recovered/Not Resolved]
  - Vomiting [Not Recovered/Not Resolved]
  - Muscle spasticity [Unknown]
  - Patient uncooperative [Not Recovered/Not Resolved]
  - Unresponsive to stimuli [Recovered/Resolved]
  - Agitation [Unknown]
  - Abnormal behaviour [Unknown]
  - Lethargy [Recovered/Resolved]
  - Anger [Not Recovered/Not Resolved]

NARRATIVE: CASE EVENT DATE: 201710
